FAERS Safety Report 9221205 (Version 2)
Quarter: 2013Q2

REPORT INFORMATION
  Report Type: Spontaneous
  Country: US (occurrence: US)
  Receive Date: 20130410
  Receipt Date: 20130618
  Transmission Date: 20140414
  Serious: Yes (Death, Hospitalization, Other)
  Sender: FDA-Public Use
  Company Number: US-AMGEN-USASP2013023448

PATIENT
  Age: 81 Year
  Sex: Female
  Weight: 58.96 kg

DRUGS (23)
  1. PROCRIT [Suspect]
     Indication: RED BLOOD CELL COUNT DECREASED
     Dosage: 40000 UNIT, QWK/ 6 MO
     Route: 058
     Dates: start: 20060321, end: 20130211
  2. PROCRIT [Suspect]
     Indication: RENAL FAILURE CHRONIC
  3. PROCRIT [Suspect]
     Indication: ANAEMIA MACROCYTIC
  4. PROTONIX [Suspect]
     Indication: GASTROOESOPHAGEAL REFLUX DISEASE
     Dosage: 40 MG, QD
     Route: 048
     Dates: start: 20110718
  5. HYZAAR [Concomitant]
     Dosage: MG, BID
     Route: 048
     Dates: start: 20120425
  6. ISOSORBIDE [Concomitant]
     Indication: HYPERTENSION
     Dosage: 30 MG, QD
     Route: 048
     Dates: start: 20120426
  7. PLAVIX [Concomitant]
     Dosage: 75 MG, QD
     Route: 048
     Dates: start: 20110718
  8. GLIPIZIDE [Concomitant]
     Indication: BLOOD GLUCOSE ABNORMAL
     Dosage: 2.5 MG, BID
     Route: 048
     Dates: start: 20130116
  9. PRAVASTATIN [Concomitant]
     Indication: BLOOD CHOLESTEROL INCREASED
     Dosage: 40 MG, QD
  10. MAGNESIUM [Concomitant]
     Dosage: 30 MG, TID
     Route: 048
     Dates: start: 20120928
  11. METOPROLOL [Concomitant]
     Indication: HYPERTENSION
     Dosage: 25 MG, QD
     Route: 048
     Dates: start: 20130212
  12. CENTRUM                            /02217401/ [Concomitant]
     Dosage: 3500 UNIT, QD
     Route: 048
     Dates: start: 20120928
  13. ALLOPURINOL [Concomitant]
     Dosage: 100 MG, QD
     Route: 048
     Dates: start: 20120426
  14. ASPIRIN [Concomitant]
     Dosage: 81 MG, QD
     Dates: start: 20130212
  15. CYCLOBENZAPRINE [Concomitant]
     Dosage: 10 MG, QHS
     Route: 048
     Dates: start: 20130212
  16. FOLIC ACID [Concomitant]
     Dosage: 400 MUG, QD
     Route: 048
     Dates: start: 20110718
  17. HYDROCODONE BITARTRATE [Concomitant]
     Dosage: UNK
  18. MONTELUKAST [Concomitant]
     Dosage: 10 MG, QD
     Route: 048
     Dates: start: 20130212
  19. PREDNISONE [Concomitant]
     Dosage: 5 MG, QD
     Route: 048
     Dates: start: 20120426
  20. PREDNISONE [Concomitant]
     Dosage: 5 MG, AS DESIRE
     Dates: start: 20130227
  21. PROZAC [Concomitant]
     Dosage: 20 MG, QD
     Route: 048
     Dates: start: 20130227
  22. TEMAZEPAM [Concomitant]
     Dosage: 7.5 MG, QHS
     Route: 048
     Dates: start: 20130212
  23. STOOL SOFTENER [Concomitant]
     Dosage: 50 MG, BID
     Route: 048
     Dates: start: 20121109

REACTIONS (10)
  - Death [Fatal]
  - Nephrolithiasis [Unknown]
  - Cholelithiasis [Unknown]
  - Red blood cell count decreased [Unknown]
  - Nephrogenic anaemia [Unknown]
  - Anaemia [Unknown]
  - Thrombosis [Unknown]
  - Deep vein thrombosis [Recovered/Resolved]
  - Pulmonary embolism [Recovered/Resolved]
  - Malaise [Unknown]
